FAERS Safety Report 8927494 (Version 2)
Quarter: 2012Q4

REPORT INFORMATION
  Report Type: 
  Country: PL (occurrence: PL)
  Receive Date: 20121127
  Receipt Date: 20121206
  Transmission Date: 20130627
  Serious: Yes (Other)
  Sender: FDA-Public Use
  Company Number: PL-ROCHE-731962

PATIENT
  Age: 74 Year
  Sex: Female
  Weight: 60 kg

DRUGS (12)
  1. HERCEPTIN [Suspect]
     Indication: BREAST CANCER METASTATIC
     Route: 042
  2. HERCEPTIN [Suspect]
     Route: 042
  3. HERCEPTIN [Suspect]
     Route: 042
  4. HERCEPTIN [Suspect]
     Dosage: loading dose
     Route: 065
  5. HERCEPTIN [Suspect]
     Dosage: maintanance dose
     Route: 065
  6. HERCEPTIN [Suspect]
     Route: 065
  7. TAXOL [Suspect]
     Indication: BREAST CANCER METASTATIC
     Route: 042
     Dates: start: 20070906, end: 20071220
  8. TAXOL [Suspect]
     Dosage: DOSE REDUCED TO 25%
     Route: 042
  9. TAXOL [Suspect]
     Route: 065
  10. BISOPROLOL [Concomitant]
     Route: 065
  11. RAMIPRIL [Concomitant]
     Route: 065
  12. FEBROFEN [Concomitant]
     Indication: RHEUMATOID ARTHRITIS
     Route: 048

REACTIONS (8)
  - Bone pain [Recovered/Resolved]
  - Ejection fraction decreased [Recovered/Resolved]
  - Cataract [Recovered/Resolved]
  - Neuropathy peripheral [Recovered/Resolved]
  - Muscular weakness [Unknown]
  - Hypoaesthesia [Unknown]
  - Arthralgia [Unknown]
  - Oedema peripheral [Unknown]
